FAERS Safety Report 8561763 (Version 2)
Quarter: 2012Q4

REPORT INFORMATION
  Report Type: 
  Country: US (occurrence: US)
  Receive Date: 20120515
  Receipt Date: 20120903
  Transmission Date: 20130627
  Serious: No
  Sender: FDA-Public Use
  Company Number: US-PFIZER INC-2012114136

PATIENT
  Age: 54 Year
  Sex: Male

DRUGS (2)
  1. XALKORI [Suspect]
     Indication: TRACHEAL CANCER
     Dosage: 250 mg, UNK
     Dates: start: 20120413
  2. XALKORI [Suspect]
     Dosage: 200 mg
     Dates: start: 20120413, end: 20120716

REACTIONS (1)
  - Hepatic enzyme increased [Unknown]
